FAERS Safety Report 20729765 (Version 1)
Quarter: 2022Q2

REPORT INFORMATION
  Report Type: Spontaneous
  Country: US (occurrence: US)
  Receive Date: 20220420
  Receipt Date: 20220420
  Transmission Date: 20220720
  Serious: No
  Sender: FDA-Public Use
  Company Number: US-TEVA-2022-US-2021606

PATIENT
  Sex: Female

DRUGS (4)
  1. QVAR REDIHALER [Suspect]
     Active Substance: BECLOMETHASONE DIPROPIONATE
     Indication: Product used for unknown indication
     Dosage: 4 DOSAGE FORMS DAILY; DOSE OF 2 INHALATIONS TWICE DAILY
     Route: 065
  2. QVAR REDIHALER [Suspect]
     Active Substance: BECLOMETHASONE DIPROPIONATE
  3. QVAR [Interacting]
     Active Substance: BECLOMETHASONE DIPROPIONATE
     Route: 065
  4. QVAR [Interacting]
     Active Substance: BECLOMETHASONE DIPROPIONATE

REACTIONS (3)
  - Dry mouth [Unknown]
  - Wrong technique in device usage process [Unknown]
  - Product leakage [Unknown]
